FAERS Safety Report 14623853 (Version 2)
Quarter: 2018Q2

REPORT INFORMATION
  Report Type: Spontaneous
  Country: JP (occurrence: JP)
  Receive Date: 20180312
  Receipt Date: 20180402
  Transmission Date: 20180711
  Serious: Yes (Hospitalization)
  Sender: FDA-Public Use
  Company Number: JP-009507513-1803JPN000766J

PATIENT
  Age: 89 Year
  Sex: Female

DRUGS (2)
  1. BELSOMRA [Suspect]
     Active Substance: SUVOREXANT
     Dosage: 15 MG, QD
     Route: 048
     Dates: end: 20180225
  2. BELSOMRA [Suspect]
     Active Substance: SUVOREXANT
     Dosage: UNK, QD
     Route: 048
     Dates: start: 201803

REACTIONS (1)
  - Influenza [Unknown]
